FAERS Safety Report 9786626 (Version 1)
Quarter: 2013Q4

REPORT INFORMATION
  Report Type: Spontaneous
  Country: US (occurrence: US)
  Receive Date: 20131227
  Receipt Date: 20131227
  Transmission Date: 20140711
  Serious: Yes (Life-Threatening, Other)
  Sender: FDA-Public Use
  Company Number: PHHY2013US149649

PATIENT
  Age: 58 Year
  Sex: Male

DRUGS (3)
  1. AMIODARONE [Suspect]
     Route: 042
  2. AMIODARONE [Suspect]
     Indication: PROPHYLAXIS
     Dosage: 400 MG, QID
     Route: 048
  3. AMIODARONE [Suspect]
     Dosage: 200 MG, PER DAY

REACTIONS (2)
  - Hyponatraemia [Recovered/Resolved]
  - Mental status changes [Recovered/Resolved]
